FAERS Safety Report 10400020 (Version 2)
Quarter: 2014Q3

REPORT INFORMATION
  Report Type: Spontaneous
  Country: US (occurrence: US)
  Receive Date: 20140821
  Receipt Date: 20140821
  Transmission Date: 20150326
  Serious: No
  Sender: FDA-Public Use
  Company Number: US-ABBVIE-98P-163-0160675-00

PATIENT
  Sex: Female
  Weight: 81.7 kg

DRUGS (8)
  1. NO DRUG NAME [Concomitant]
     Indication: THYROID THERAPY
  2. NO DRUG NAME [Concomitant]
  3. NO DRUG NAME [Concomitant]
     Indication: ANAEMIA
  4. NO DRUG NAME [Concomitant]
     Indication: PANIC ATTACK
  5. NO DRUG NAME [Concomitant]
     Indication: PANIC ATTACK
  6. LEVOTHYROXINE [Suspect]
     Active Substance: LEVOTHYROXINE
     Indication: HYPOTHYROIDISM
     Route: 048
     Dates: start: 1984
  7. NO DRUG NAME [Concomitant]
     Indication: PANIC ATTACK
     Dates: start: 1997
  8. NO DRUG NAME [Concomitant]
     Indication: SUPPLEMENTATION THERAPY

REACTIONS (5)
  - Dry skin [Not Recovered/Not Resolved]
  - Hair texture abnormal [Not Recovered/Not Resolved]
  - Condition aggravated [Not Recovered/Not Resolved]
  - Sedation [Not Recovered/Not Resolved]
  - Panic reaction [Not Recovered/Not Resolved]

NARRATIVE: CASE EVENT DATE: 1984
